FAERS Safety Report 5309637-9 (Version None)
Quarter: 2007Q2

REPORT INFORMATION
  Report Type: 
  Country: None (occurrence: None)
  Receive Date: 20070427
  Receipt Date: 20060627
  Transmission Date: 20071010
  Serious: No
  Sender: FDA-Public Use
  Company Number: US-GLAXOSMITHKLINE-A0609885A

PATIENT
  Sex: Male

DRUGS (2)
  1. DEXEDRINE [Suspect]
     Dosage: 15VA SEE DOSAGE TEXT
     Route: 048
     Dates: start: 20060614
  2. NO CONCURRENT MEDICATION [Concomitant]

REACTIONS (2)
  - FATIGUE [None]
  - SOMNOLENCE [None]
